FAERS Safety Report 11624433 (Version 6)
Quarter: 2018Q3

REPORT INFORMATION
  Report Type: Spontaneous
  Country: JP (occurrence: JP)
  Receive Date: 20151013
  Receipt Date: 20180727
  Transmission Date: 20181010
  Serious: Yes (Hospitalization)
  Sender: FDA-Public Use
  Company Number: JP-UNITED THERAPEUTICS-UNT-2015-001747

PATIENT
  Age: 23 Year
  Sex: Female
  Weight: 51 kg

DRUGS (15)
  1. TRACLEER [Concomitant]
     Active Substance: BOSENTAN
     Indication: PULMONARY ARTERIAL HYPERTENSION
     Dosage: 250 MG, QD
     Route: 048
     Dates: start: 20130529
  2. TRACLEER [Concomitant]
     Active Substance: BOSENTAN
     Indication: SJOGREN^S SYNDROME
  3. LANIRAPID [Concomitant]
     Active Substance: METILDIGOXIN
     Indication: RIGHT VENTRICULAR FAILURE
     Dosage: 0.05 MG, QD
     Route: 048
     Dates: start: 20130529
  4. REMODULIN [Suspect]
     Active Substance: TREPROSTINIL
     Indication: PULMONARY ARTERIAL HYPERTENSION
     Dosage: 0.006 ?G/KG, CONTINUING
     Route: 058
     Dates: start: 20150205, end: 20150622
  5. REMODULIN [Suspect]
     Active Substance: TREPROSTINIL
     Indication: CONNECTIVE TISSUE DISORDER
     Dosage: UNK
     Route: 041
     Dates: start: 20150618
  6. DIART [Concomitant]
     Active Substance: AZOSEMIDE
     Indication: RIGHT VENTRICULAR FAILURE
     Dosage: 60 MG, QD
     Route: 048
     Dates: start: 20130528
  7. REMODULIN [Suspect]
     Active Substance: TREPROSTINIL
     Indication: SJOGREN^S SYNDROME
     Dosage: UNK
     Route: 041
     Dates: start: 20150623, end: 20150720
  8. ADCIRCA [Concomitant]
     Active Substance: TADALAFIL
     Indication: PULMONARY ARTERIAL HYPERTENSION
     Dosage: 40 MG, QD
     Route: 048
     Dates: start: 20130919
  9. TAKEPRON [Concomitant]
     Active Substance: LANSOPRAZOLE
     Indication: GASTROOESOPHAGEAL REFLUX DISEASE
     Dosage: 15 MG, QD
     Route: 048
     Dates: start: 20140320
  10. THYRADIN S [Concomitant]
     Active Substance: LEVOTHYROXINE SODIUM
     Dosage: 25 ?G, QD
     Route: 048
  11. SPIRONOLACTONE. [Concomitant]
     Active Substance: SPIRONOLACTONE
     Indication: RIGHT VENTRICULAR FAILURE
     Dosage: 25 MG, QD
     Route: 048
     Dates: start: 20130528
  12. ALOSITOL [Concomitant]
     Active Substance: ALLOPURINOL
     Indication: HYPERURICAEMIA
     Dosage: 100 MG, QD
     Route: 048
     Dates: start: 20130528
  13. ADCIRCA [Concomitant]
     Active Substance: TADALAFIL
     Indication: SJOGREN^S SYNDROME
  14. REMODULIN [Suspect]
     Active Substance: TREPROSTINIL
     Dosage: 0.018 ?G/KG, CONTINUING
     Route: 041
  15. THYRADIN S [Concomitant]
     Active Substance: LEVOTHYROXINE SODIUM
     Indication: THYROIDITIS CHRONIC
     Dosage: 12.5 ?G, QD
     Route: 048

REACTIONS (19)
  - Infusion site pain [Recovering/Resolving]
  - Malaise [Recovered/Resolved]
  - Pruritus generalised [Recovered/Resolved]
  - Flushing [Unknown]
  - Urine output increased [Recovered/Resolved]
  - Dermatitis contact [Recovered/Resolved]
  - Vomiting [Recovering/Resolving]
  - Type IV hypersensitivity reaction [Recovered/Resolved with Sequelae]
  - Generalised erythema [Recovered/Resolved]
  - Diarrhoea [Not Recovered/Not Resolved]
  - Menorrhagia [Recovering/Resolving]
  - Infusion site cellulitis [Recovering/Resolving]
  - Dysphoria [Unknown]
  - Pyrexia [Unknown]
  - Nausea [Recovering/Resolving]
  - Headache [Recovering/Resolving]
  - Dizziness [Unknown]
  - Pain in jaw [Unknown]
  - Chest discomfort [Recovered/Resolved]

NARRATIVE: CASE EVENT DATE: 2015
